FAERS Safety Report 8956019 (Version 2)
Quarter: 2013Q2

REPORT INFORMATION
  Report Type: Spontaneous
  Country: US (occurrence: US)
  Receive Date: 20121210
  Receipt Date: 20130419
  Transmission Date: 20140414
  Serious: No
  Sender: FDA-Public Use
  Company Number: US-009507513-1212USA002697

PATIENT
  Sex: Female

DRUGS (1)
  1. IMPLANON [Suspect]
     Indication: CONTRACEPTION
     Dosage: 1 UNK, UNK
     Route: 059
     Dates: start: 201112

REACTIONS (2)
  - Unintended pregnancy [Unknown]
  - Medical device complication [Unknown]
